FAERS Safety Report 22938347 (Version 3)
Quarter: 2023Q4

REPORT INFORMATION
  Report Type: Spontaneous
  Country: FR (occurrence: FR)
  Receive Date: 20230913
  Receipt Date: 20231204
  Transmission Date: 20240109
  Serious: Yes (Other)
  Sender: FDA-Public Use
  Company Number: FR-VALIDUS PHARMACEUTICALS LLC-FR-VDP-2023-016254

PATIENT

DRUGS (14)
  1. CEFOTAXIME SODIUM [Suspect]
     Active Substance: CEFOTAXIME SODIUM
     Indication: Pachymeningitis
     Dosage: 3 G, QD (POWDER FOR SOLUTION FOR INJECTION, 1 G)
     Route: 030
     Dates: start: 20230708
  2. METRONIDAZOLE [Suspect]
     Active Substance: METRONIDAZOLE
     Indication: Pachymeningitis
     Dosage: 500 MG, QD
     Route: 042
     Dates: start: 20230708, end: 20230802
  3. VORICONAZOLE [Suspect]
     Active Substance: VORICONAZOLE
     Indication: Pachymeningitis
     Dosage: 500 MG, QD
     Route: 042
     Dates: start: 20230715, end: 20230726
  4. VORICONAZOLE [Suspect]
     Active Substance: VORICONAZOLE
     Dosage: 640 MG, QD
     Route: 042
     Dates: start: 20230726, end: 20230731
  5. VORICONAZOLE [Suspect]
     Active Substance: VORICONAZOLE
     Dosage: 500 MG, QD
     Route: 042
     Dates: start: 20230731, end: 20230808
  6. VORICONAZOLE [Suspect]
     Active Substance: VORICONAZOLE
     Dosage: 640 MG, QD
     Route: 042
     Dates: start: 20230808, end: 20230811
  7. LINEZOLID [Suspect]
     Active Substance: LINEZOLID
     Indication: Pachymeningitis
     Dosage: 1200 MG, QD
     Route: 042
     Dates: start: 20230715, end: 20230810
  8. PANTOPRAZOLE [Concomitant]
     Active Substance: PANTOPRAZOLE
     Indication: Product used for unknown indication
     Dosage: UNK
     Route: 065
  9. AMINO ACIDS\DEXTROSE\ELECTROLYTES NOS\SOYBEAN OIL [Concomitant]
     Active Substance: AMINO ACIDS\DEXTROSE\ELECTROLYTES NOS\SOYBEAN OIL
     Indication: Product used for unknown indication
     Dosage: UNK
     Route: 065
  10. HUMALOG [Concomitant]
     Active Substance: INSULIN LISPRO
     Indication: Product used for unknown indication
     Dosage: UNK
     Route: 065
  11. LOVENOX [Concomitant]
     Active Substance: ENOXAPARIN SODIUM
     Indication: Product used for unknown indication
     Dosage: UNK (SOLUTION FOR INJECTION IN PRE-FILLED SYRINGE)
     Route: 065
  12. METHYLPREDNISOLONE [Concomitant]
     Active Substance: METHYLPREDNISOLONE
     Indication: Product used for unknown indication
     Dosage: UNK
     Route: 065
  13. METHYLPREDNISOLONE HEMISUCCINATE [Concomitant]
     Active Substance: METHYLPREDNISOLONE HEMISUCCINATE
     Indication: Product used for unknown indication
     Dosage: UNK
     Route: 065
  14. VITAMIN K1 [Concomitant]
     Active Substance: PHYTONADIONE
     Indication: Product used for unknown indication
     Dosage: UNK
     Route: 065

REACTIONS (1)
  - Hepatic cytolysis [Recovered/Resolved]

NARRATIVE: CASE EVENT DATE: 20230806
